FAERS Safety Report 8769807 (Version 1)
Quarter: 2012Q4

REPORT INFORMATION
  Report Type: 
  Country: US (occurrence: US)
  Receive Date: 20120905
  Receipt Date: 20120905
  Transmission Date: 20130627
  Serious: No
  Sender: FDA-Public Use
  Company Number: US-B.I. PHARMACEUTICALS,INC./RIDGEFIELD-2012-BP-20727BP

PATIENT
  Sex: Male

DRUGS (6)
  1. SPIRIVA [Suspect]
     Indication: CHRONIC OBSTRUCTIVE PULMONARY DISEASE
     Dosage: 18 mcg
     Route: 055
     Dates: start: 2010
  2. LETAIRIS [Concomitant]
     Indication: PULMONARY ARTERIAL HYPERTENSION
     Dosage: 5 mg
     Route: 048
     Dates: start: 201202
  3. REVATIO [Concomitant]
     Indication: PULMONARY ARTERIAL HYPERTENSION
     Dosage: 60 mg
     Route: 048
     Dates: start: 2010
  4. VITORIN [Concomitant]
     Indication: CARDIAC DISORDER
     Route: 048
     Dates: start: 2005
  5. LISINOPRIL HCT [Concomitant]
     Indication: CARDIAC DISORDER
     Route: 048
  6. METROPOLOL ER [Concomitant]
     Indication: CARDIAC DISORDER
     Dosage: 50 mg
     Route: 048

REACTIONS (2)
  - Dyspnoea [Not Recovered/Not Resolved]
  - Product quality issue [Unknown]
